FAERS Safety Report 13331013 (Version 1)
Quarter: 2017Q1

REPORT INFORMATION
  Report Type: Spontaneous
  Country: DE (occurrence: DE)
  Receive Date: 20170313
  Receipt Date: 20170313
  Transmission Date: 20170428
  Serious: Yes (Hospitalization)
  Sender: FDA-Public Use
  Company Number: DE-ALKABELLO-2017AA000619

PATIENT
  Age: 16 Year
  Sex: Male
  Weight: 68 kg

DRUGS (2)
  1. SLITONE ULTRA M (197) 3-TREES (1242) [Concomitant]
     Active Substance: ALLERGENIC EXTRACTS
     Dosage: DOSE UNIT:150 SUBLINGUAL REACTIVITY UNIT
     Dates: start: 20160916, end: 201610
  2. GRAZAX [Suspect]
     Active Substance: PHLEUM PRATENSE POLLEN
     Dosage: DOSE UNIT:75000 SQ-T
     Dates: start: 20160617, end: 201610

REACTIONS (4)
  - Oral mucosal blistering [Recovered/Resolved]
  - Insomnia [Recovered/Resolved]
  - Headache [Recovered/Resolved]
  - Condition aggravated [Recovered/Resolved]

NARRATIVE: CASE EVENT DATE: 20161025
